FAERS Safety Report 4596598-3 (Version None)
Quarter: 2005Q1

REPORT INFORMATION
  Report Type: 
  Country: None (occurrence: None)
  Receive Date: 20050228
  Receipt Date: 20040625
  Transmission Date: 20050727
  Serious: No
  Sender: FDA-Public Use
  Company Number: 8411

PATIENT
  Age: 53 Year
  Sex: Female

DRUGS (3)
  1. METHOTREXATE [Suspect]
  2. INFLIXIMAB [Suspect]
  3. SULFASALAZINE [Suspect]

REACTIONS (3)
  - C-REACTIVE PROTEIN INCREASED [None]
  - FATIGUE [None]
  - PYREXIA [None]
